FAERS Safety Report 11533170 (Version 3)
Quarter: 2016Q1

REPORT INFORMATION
  Report Type: Spontaneous
  Country: US (occurrence: US)
  Receive Date: 20150921
  Receipt Date: 20160112
  Transmission Date: 20160525
  Serious: No
  Sender: FDA-Public Use
  Company Number: US-CELGENEUS-USA-2015092113

PATIENT
  Sex: Male

DRUGS (2)
  1. OTEZLA [Suspect]
     Active Substance: APREMILAST
     Route: 048
     Dates: start: 20151017
  2. OTEZLA [Suspect]
     Active Substance: APREMILAST
     Indication: PUSTULAR PSORIASIS
     Route: 048
     Dates: start: 20141104

REACTIONS (5)
  - Psoriasis [Unknown]
  - Hypertension [Unknown]
  - Diarrhoea [Unknown]
  - Visual impairment [Unknown]
  - Insomnia [Unknown]

NARRATIVE: CASE EVENT DATE: 2015
